FAERS Safety Report 5741562-1 (Version None)
Quarter: 2008Q2

REPORT INFORMATION
  Report Type: 
  Country: None (occurrence: None)
  Receive Date: 20080519
  Receipt Date: 20080401
  Transmission Date: 20081010
  Serious: Yes (Hospitalization)
  Sender: FDA-Public Use
  Company Number: US-BAYER-200714057BWH

PATIENT
  Age: 62 Year
  Sex: Male

DRUGS (1)
  1. NEXAVAR [Suspect]
     Indication: ANGIOSARCOMA
     Route: 048
     Dates: start: 20071001, end: 20071008

REACTIONS (7)
  - BLOOD BILIRUBIN INCREASED [None]
  - CONFUSIONAL STATE [None]
  - DYSPHAGIA [None]
  - FATIGUE [None]
  - LETHARGY [None]
  - MUSCLE TWITCHING [None]
  - RENAL IMPAIRMENT [None]
